FAERS Safety Report 19201325 (Version 1)
Quarter: 2021Q2

REPORT INFORMATION
  Report Type: Report from Study
  Country: US (occurrence: US)
  Receive Date: 20210430
  Receipt Date: 20210430
  Transmission Date: 20210717
  Serious: Yes (Death, Other)
  Sender: FDA-Public Use
  Company Number: US-ASTRAZENECA-2021A096236

PATIENT
  Age: 986 Month
  Sex: Female
  Weight: 59 kg

DRUGS (2)
  1. CHEMOTHERAPEUTIC DRUGS [Concomitant]
  2. LYNPARZA [Suspect]
     Active Substance: OLAPARIB
     Indication: OVARIAN CANCER
     Route: 048

REACTIONS (12)
  - Gastric disorder [Unknown]
  - Carbohydrate antigen 125 increased [Unknown]
  - Product distribution issue [Unknown]
  - Neuropathy peripheral [Unknown]
  - Crying [Unknown]
  - Middle insomnia [Unknown]
  - Death [Fatal]
  - Metastases to liver [Unknown]
  - Metastases to lymph nodes [Unknown]
  - Hypoacusis [Unknown]
  - Product dispensing error [Unknown]
  - Product dose omission issue [Not Recovered/Not Resolved]

NARRATIVE: CASE EVENT DATE: 202102
